FAERS Safety Report 15937430 (Version 1)
Quarter: 2019Q1

REPORT INFORMATION
  Report Type: Spontaneous
  Country: US (occurrence: US)
  Receive Date: 20190208
  Receipt Date: 20190208
  Transmission Date: 20190417
  Serious: Yes (Other)
  Sender: FDA-Public Use
  Company Number: None

PATIENT
  Age: 67 Year
  Sex: Male
  Weight: 108 kg

DRUGS (5)
  1. RAPAFLO [Concomitant]
     Active Substance: SILODOSIN
  2. SILODOSIN 8MG CAPSULE SUBSTITUTED FOR RAPAFLO 8MG CAPSULE [Suspect]
     Active Substance: SILODOSIN
     Dosage: ?          QUANTITY:1 CAPSULE(S);?
     Route: 048
     Dates: start: 20190130, end: 20190205
  3. ADVIL [Concomitant]
     Active Substance: IBUPROFEN
  4. CLARITIN [Concomitant]
     Active Substance: LORATADINE
  5. ALEVE [Concomitant]
     Active Substance: NAPROXEN SODIUM

REACTIONS (3)
  - Product substitution issue [None]
  - Vertigo [None]
  - Gait disturbance [None]

NARRATIVE: CASE EVENT DATE: 20190201
